FAERS Safety Report 15434822 (Version 1)
Quarter: 2018Q3

REPORT INFORMATION
  Report Type: Spontaneous
  Country: US (occurrence: US)
  Receive Date: 20180922
  Receipt Date: 20180922
  Transmission Date: 20181010
  Serious: Yes (Life-Threatening, Other)
  Sender: FDA-Public Use
  Company Number: None

PATIENT
  Age: 68 Year
  Sex: Male
  Weight: 80.1 kg

DRUGS (9)
  1. AROVASTATIN [Concomitant]
  2. BABY ASPIRIN [Concomitant]
     Active Substance: ASPIRIN
  3. LANTUS SOLOSTAR. [Concomitant]
  4. LISINOPROL [Concomitant]
     Active Substance: LISINOPRIL
  5. METFORMIN [Suspect]
     Active Substance: METFORMIN HYDROCHLORIDE
     Indication: DIABETES MELLITUS
     Dosage: ?          QUANTITY:1 TABLET(S);OTHER ROUTE:SWALLOW WITH WATER?
     Dates: start: 20120920, end: 20180120
  6. CALCITROL [Concomitant]
     Active Substance: CALCITRIOL
  7. LEVOTHYROXIN [Concomitant]
     Active Substance: LEVOTHYROXINE
  8. TAMSULOSIN [Concomitant]
     Active Substance: TAMSULOSIN
  9. METOPROLOL. [Concomitant]
     Active Substance: METOPROLOL

REACTIONS (2)
  - Renal impairment [None]
  - Lactic acidosis [None]

NARRATIVE: CASE EVENT DATE: 20180115
